FAERS Safety Report 9831764 (Version 1)
Quarter: 2014Q1

REPORT INFORMATION
  Report Type: Spontaneous
  Country: US (occurrence: US)
  Receive Date: 20140121
  Receipt Date: 20140121
  Transmission Date: 20141002
  Serious: No
  Sender: FDA-Public Use
  Company Number: US-PFIZER INC-2014013057

PATIENT
  Sex: Female

DRUGS (2)
  1. CALAN SR [Suspect]
     Dosage: 240 MG, 1X/DAY (240 MG IN THE MORNING)
  2. CALAN SR [Suspect]
     Dosage: 180 MG, 1X/DAY

REACTIONS (4)
  - Feeling abnormal [Unknown]
  - Sleep disorder [Unknown]
  - Oedema [Unknown]
  - Constipation [Unknown]
